FAERS Safety Report 7017544-9 (Version None)
Quarter: 2010Q3

REPORT INFORMATION
  Report Type: 
  Country: None (occurrence: None)
  Receive Date: 20100928
  Receipt Date: 20100916
  Transmission Date: 20110219
  Serious: Yes (Other)
  Sender: FDA-Public Use
  Company Number: AT-BAYER-201040291GPV

PATIENT
  Age: 35 Year
  Sex: Female

DRUGS (1)
  1. YAZ [Suspect]
     Indication: CONTRACEPTION
     Route: 048
     Dates: start: 20100801, end: 20100801

REACTIONS (3)
  - ELECTROCARDIOGRAM T WAVE INVERSION [None]
  - TACHYCARDIA [None]
  - VERTIGO [None]
